FAERS Safety Report 6620250-3 (Version None)
Quarter: 2010Q1

REPORT INFORMATION
  Report Type: 
  Country: None (occurrence: None)
  Receive Date: 20100309
  Receipt Date: 20070611
  Transmission Date: 20100710
  Serious: Yes (Other)
  Sender: FDA-Public Use
  Company Number: HQWYE583112JUN07

PATIENT
  Age: 52 Year
  Sex: Female
  Weight: 97.16 kg

DRUGS (7)
  1. NEUMEGA [Suspect]
     Indication: THROMBOCYTOPENIA
     Route: 058
     Dates: start: 20070604, end: 20070605
  2. NEUMEGA [Suspect]
     Route: 058
     Dates: start: 20070606, end: 20070607
  3. COMPAZINE [Concomitant]
     Dosage: 10 MG AS NEEDED
     Route: 048
  4. PERCOCET [Concomitant]
     Dosage: 5 MG/325 MG; 1 OR 2 TABS EVERY 4 HRS
     Route: 048
  5. PROTONIX [Concomitant]
     Route: 048
  6. OXYCONTIN [Concomitant]
     Route: 048
  7. DECADRON [Concomitant]
     Dosage: 4 MG
     Route: 065

REACTIONS (3)
  - ASCITES [None]
  - CONDITION AGGRAVATED [None]
  - OEDEMA PERIPHERAL [None]
